FAERS Safety Report 6679558-8 (Version None)
Quarter: 2010Q2

REPORT INFORMATION
  Report Type: 
  Country: None (occurrence: None)
  Receive Date: 20100413
  Receipt Date: 20100408
  Transmission Date: 20101027
  Serious: Yes (Death, Other)
  Sender: FDA-Public Use
  Company Number: PHEH2006US09623

PATIENT
  Sex: Male
  Weight: 72.562 kg

DRUGS (22)
  1. ZOMETA [Suspect]
     Indication: BREAST CANCER METASTATIC
  2. AREDIA [Suspect]
     Indication: BREAST CANCER METASTATIC
  3. PROCARDIA [Concomitant]
     Indication: AORTIC VALVE INCOMPETENCE
  4. ZOCOR [Concomitant]
     Indication: BLOOD CHOLESTEROL
  5. AMICAR [Concomitant]
     Indication: HAEMORRHAGE
  6. ARIMIDEX [Concomitant]
  7. LOPRESSOR [Concomitant]
  8. DIGOXIN [Concomitant]
  9. COUMADIN [Concomitant]
  10. CALCIUM [Concomitant]
  11. MULTI-VITAMINS [Concomitant]
  12. LOVENOX [Concomitant]
  13. CARTIA                                  /AUS/ [Concomitant]
  14. DEMADEX [Concomitant]
  15. ANTIVERT [Concomitant]
  16. TAXOL [Concomitant]
  17. ARIMIDEX [Concomitant]
  18. HYDROCODONE BITARTRATE [Concomitant]
  19. OXYCODONE [Concomitant]
  20. CLINDAMYCIN [Concomitant]
  21. KETOCONAZOLE [Concomitant]
  22. GENTAK [Concomitant]

REACTIONS (37)
  - ABSCESS JAW [None]
  - ACTINOMYCOSIS [None]
  - ALPHA HAEMOLYTIC STREPTOCOCCAL INFECTION [None]
  - ANAEMIA [None]
  - ANGINA PECTORIS [None]
  - ANXIETY [None]
  - AORTIC VALVE REPLACEMENT [None]
  - AORTIC VALVE STENOSIS [None]
  - BACK PAIN [None]
  - CENTRAL VENOUS CATHETERISATION [None]
  - DEATH [None]
  - DEBRIDEMENT [None]
  - DEHYDRATION [None]
  - DIZZINESS [None]
  - DYSPNOEA [None]
  - EJECTION FRACTION DECREASED [None]
  - HYPERCHOLESTEROLAEMIA [None]
  - HYPERLIPIDAEMIA [None]
  - INFLAMMATION [None]
  - INJURY [None]
  - MYELODYSPLASTIC SYNDROME [None]
  - OESOPHAGEAL ULCER [None]
  - OESOPHAGITIS [None]
  - ORAL DISCHARGE [None]
  - ORAL DISCOMFORT [None]
  - OSTEOMYELITIS [None]
  - OSTEONECROSIS [None]
  - PAIN [None]
  - PALPITATIONS [None]
  - SPINAL OSTEOARTHRITIS [None]
  - SURGERY [None]
  - TACHYCARDIA [None]
  - THROMBOCYTOPENIA [None]
  - TOOTH EXTRACTION [None]
  - VERTIGO [None]
  - WEIGHT DECREASED [None]
  - WOUND [None]
